FAERS Safety Report 19599873 (Version 11)
Quarter: 2023Q1

REPORT INFORMATION
  Report Type: Report from Study
  Country: US (occurrence: US)
  Receive Date: 20210722
  Receipt Date: 20230313
  Transmission Date: 20230418
  Serious: Yes (Other)
  Sender: FDA-Public Use
  Company Number: NVSC2021US156676

PATIENT
  Age: 2 Year
  Sex: Male
  Weight: 14.7 kg

DRUGS (17)
  1. TRAMETINIB [Suspect]
     Active Substance: TRAMETINIB
     Indication: Neurofibroma
     Dosage: 8.5 ML (0.05 MG/ML ORAL SUSPENSION)
     Route: 048
     Dates: start: 20210528, end: 20210625
  2. TRAMETINIB [Suspect]
     Active Substance: TRAMETINIB
     Dosage: 8.5 ML (0.05 MG/ML ORAL SUSPENSION)
     Route: 048
     Dates: start: 20210626, end: 20210722
  3. TRAMETINIB [Suspect]
     Active Substance: TRAMETINIB
     Dosage: 8.5 ML (0.05 MG/ML ORAL SUSPENSION)
     Route: 048
     Dates: start: 20210723, end: 20210819
  4. TRAMETINIB [Suspect]
     Active Substance: TRAMETINIB
     Dosage: 8.6 ML (0.05 MG/ML ORAL SUSPENSION)
     Route: 048
     Dates: start: 20210820, end: 20210916
  5. TRAMETINIB [Suspect]
     Active Substance: TRAMETINIB
     Dosage: 8.6 ML (0.05 MG/ML ORAL SUSPENSION)
     Route: 048
     Dates: start: 20210917, end: 20211014
  6. TRAMETINIB [Suspect]
     Active Substance: TRAMETINIB
     Dosage: 8.6 ML (0.05 MG/ML ORAL SUSPENSION)
     Route: 048
     Dates: start: 20211015, end: 20211111
  7. TRAMETINIB [Suspect]
     Active Substance: TRAMETINIB
     Dosage: 8.6 ML (0.05 MG/ML ORAL SUSPENSION)
     Route: 048
     Dates: start: 20211112, end: 20211209
  8. TRAMETINIB [Suspect]
     Active Substance: TRAMETINIB
     Dosage: 9.4 ML (0.05 MG/ML ORAL SUSPENSION)
     Route: 048
     Dates: start: 20211210, end: 20220106
  9. TRAMETINIB [Suspect]
     Active Substance: TRAMETINIB
     Dosage: 9.2 ML (0.05 MG/ML ORAL SUSPENSION)
     Route: 048
     Dates: start: 20220204, end: 20220304
  10. TRAMETINIB [Suspect]
     Active Substance: TRAMETINIB
     Dosage: 0.025 MG/KG/DOSE
     Route: 065
  11. TRAMETINIB [Suspect]
     Active Substance: TRAMETINIB
     Dosage: 7.4 ML (0.05 MG/ML ORAL SUSPENSION)
     Route: 048
     Dates: start: 20220305, end: 20220331
  12. TRAMETINIB [Suspect]
     Active Substance: TRAMETINIB
     Dosage: 7.4 ML (0.05 MG/ML ORAL SUSPENSION)
     Route: 048
     Dates: start: 20220401, end: 20220428
  13. TRAMETINIB [Suspect]
     Active Substance: TRAMETINIB
     Dosage: 7.8 ML (0.05 MG/ML ORAL SUSPENSION)
     Route: 048
     Dates: start: 20220527, end: 20220623
  14. TRAMETINIB [Suspect]
     Active Substance: TRAMETINIB
     Dosage: 8.4 ML (0.05 MG/ML ORAL SUSPENSION)
     Route: 048
     Dates: start: 20230106, end: 20230202
  15. TRAMETINIB [Suspect]
     Active Substance: TRAMETINIB
     Dosage: 8.4 ML (0.05 MG/ML ORAL SUSPENSION)
     Route: 048
     Dates: start: 20230203, end: 20230302
  16. MIRALAX [Concomitant]
     Active Substance: POLYETHYLENE GLYCOL 3350
     Indication: Neurofibroma
     Dosage: 8.0 ML
     Route: 048
     Dates: start: 20220916, end: 20221013
  17. MIRALAX [Concomitant]
     Active Substance: POLYETHYLENE GLYCOL 3350
     Dosage: 8.0 ML
     Route: 048
     Dates: start: 20221014, end: 20221110

REACTIONS (50)
  - Hyperkalaemia [Recovered/Resolved]
  - Eructation [Recovered/Resolved]
  - Blood creatine phosphokinase increased [Recovering/Resolving]
  - Rash maculo-papular [Recovered/Resolved]
  - Rash maculo-papular [Recovered/Resolved]
  - Alopecia [Not Recovered/Not Resolved]
  - Dry skin [Recovered/Resolved]
  - Rash maculo-papular [Recovered/Resolved]
  - Fatigue [Recovered/Resolved]
  - Diarrhoea [Recovered/Resolved]
  - Diarrhoea [Recovered/Resolved]
  - Diarrhoea [Recovered/Resolved]
  - Diarrhoea [Recovered/Resolved]
  - Diarrhoea [Recovered/Resolved]
  - Diarrhoea [Recovered/Resolved]
  - Diarrhoea [Recovered/Resolved]
  - Diarrhoea [Recovered/Resolved]
  - Alanine aminotransferase increased [Recovered/Resolved]
  - Rhinorrhoea [Recovered/Resolved]
  - Abdominal pain [Recovered/Resolved]
  - Cough [Recovered/Resolved]
  - Cough [Recovered/Resolved]
  - Vomiting [Recovered/Resolved]
  - Bronchitis [Recovered/Resolved]
  - Fall [Recovered/Resolved]
  - Cough [Recovered/Resolved]
  - Rhinorrhoea [Recovered/Resolved]
  - Decreased appetite [Recovered/Resolved]
  - Pyrexia [Recovered/Resolved]
  - Otitis externa [Recovered/Resolved]
  - Pyrexia [Recovered/Resolved]
  - Otitis media [Recovered/Resolved]
  - Rhinorrhoea [Recovered/Resolved]
  - Pain in extremity [Recovered/Resolved]
  - Cough [Recovered/Resolved]
  - Abdominal pain [Recovered/Resolved]
  - Rhinorrhoea [Recovered/Resolved]
  - Vomiting [Recovered/Resolved]
  - Cough [Recovered/Resolved]
  - Rhinorrhoea [Recovered/Resolved]
  - Cough [Recovered/Resolved]
  - Cough [Recovered/Resolved]
  - Pyrexia [Recovered/Resolved]
  - Vomiting [Recovered/Resolved]
  - Otitis media [Recovered/Resolved]
  - Pain in extremity [Recovered/Resolved]
  - Constipation [Recovered/Resolved]
  - Upper respiratory tract infection [Recovered/Resolved]
  - Constipation [Recovered/Resolved]
  - Cough [Recovered/Resolved]

NARRATIVE: CASE EVENT DATE: 20210531
